FAERS Safety Report 7071802-0 (Version None)
Quarter: 2010Q4

REPORT INFORMATION
  Report Type: 
  Country: None (occurrence: None)
  Receive Date: 20101029
  Receipt Date: 20091116
  Transmission Date: 20110411
  Serious: No
  Sender: FDA-Public Use
  Company Number: A0813184A

PATIENT
  Sex: Female

DRUGS (11)
  1. ADVAIR DISKUS 100/50 [Suspect]
     Indication: CHRONIC OBSTRUCTIVE PULMONARY DISEASE
     Dosage: 1PUFF TWICE PER DAY
     Route: 055
     Dates: start: 20070101, end: 20090909
  2. PROVENTIL [Concomitant]
  3. ZOLOFT [Concomitant]
  4. NORVASC [Concomitant]
  5. LIPITOR [Concomitant]
  6. METOPROLOL [Concomitant]
  7. METFORMIN [Concomitant]
  8. DOXEPIN HCL [Concomitant]
  9. LYRICA [Concomitant]
  10. NAPROXEN [Concomitant]
  11. BC POWDER [Concomitant]

REACTIONS (1)
  - HEADACHE [None]
